FAERS Safety Report 5277412-X (Version None)
Quarter: 2007Q1

REPORT INFORMATION
  Report Type: 
  Country: None (occurrence: None)
  Receive Date: 20070327
  Receipt Date: 20070320
  Transmission Date: 20070707
  Serious: Yes (Death)
  Sender: FDA-Public Use
  Company Number: JP-BRACCO-BRO-011588

PATIENT
  Age: 80 Year
  Sex: Male

DRUGS (1)
  1. IOPAMIRON [Suspect]
     Indication: COMPUTERISED TOMOGRAM
     Route: 042

REACTIONS (5)
  - ANAPHYLACTIC SHOCK [None]
  - AORTIC ANEURYSM RUPTURE [None]
  - FEELING ABNORMAL [None]
  - INJECTION SITE EXTRAVASATION [None]
  - SHOCK [None]
